FAERS Safety Report 9306940 (Version 1)
Quarter: 2013Q2

REPORT INFORMATION
  Report Type: Spontaneous
  Country: US (occurrence: US)
  Receive Date: 20130523
  Receipt Date: 20130523
  Transmission Date: 20140414
  Serious: No
  Sender: FDA-Public Use
  Company Number: US-AMGEN-USASP2012074077

PATIENT
  Sex: Male

DRUGS (30)
  1. PROCRIT [Suspect]
     Indication: NEPHROGENIC ANAEMIA
     Dosage: 40 UNK, QWK
     Route: 058
     Dates: start: 20110101
  2. ARANESP [Suspect]
     Indication: PRODUCT USED FOR UNKNOWN INDICATION
     Dosage: UNK
  3. D-PENICILLAMINE [Concomitant]
     Dosage: UNK
  4. DAPSONE [Concomitant]
     Dosage: UNK
  5. DIPHENYLHYDANTOIN                  /00017401/ [Concomitant]
     Dosage: UNK
  6. FENOPROFEN [Concomitant]
     Dosage: UNK
  7. GOLD [Concomitant]
     Dosage: UNK
  8. INDOMETHACIN                       /00003801/ [Concomitant]
     Dosage: UNK
  9. INTERFERON [Concomitant]
     Dosage: UNK
  10. ISONIAZID [Concomitant]
     Dosage: UNK
  11. LAMIVUDINE [Concomitant]
     Dosage: UNK
  12. LINDANE [Concomitant]
     Dosage: UNK
  13. LINEZOLID [Concomitant]
     Dosage: UNK
  14. LEUPROLIDE [Concomitant]
     Dosage: UNK
  15. METHAZOLAMIDE [Concomitant]
     Dosage: UNK
  16. MYCOPHENOLIC ACID [Concomitant]
     Dosage: UNK
  17. PENTACHLOROPHENOL [Concomitant]
     Dosage: UNK
  18. PHENYTOIN [Concomitant]
     Dosage: UNK
  19. PROCAINAMIDE [Concomitant]
     Dosage: UNK
  20. RIBAVIRIN [Concomitant]
     Dosage: UNK
  21. RIFAMPIN [Concomitant]
     Dosage: UNK
  22. RITUXIMAB [Concomitant]
     Dosage: UNK
  23. SULFAMETHOXAZOLE [Concomitant]
     Dosage: UNK
  24. SULFASALAZINE [Concomitant]
     Dosage: UNK
  25. SULFOBROMOPHTHALEIN [Concomitant]
     Dosage: UNK
  26. TRIMETOPRIM [Concomitant]
     Dosage: UNK
  27. TACROLIMUS [Concomitant]
     Dosage: UNK
  28. THIAMPHENICOL [Concomitant]
     Dosage: UNK
  29. VALPROIC ACID [Concomitant]
     Dosage: UNK
  30. ZIDOVUDINE [Concomitant]
     Dosage: UNK

REACTIONS (1)
  - Drug ineffective [Unknown]
